FAERS Safety Report 4543093-3 (Version None)
Quarter: 2004Q4

REPORT INFORMATION
  Report Type: 
  Country: None (occurrence: None)
  Receive Date: 20041229
  Receipt Date: 20041217
  Transmission Date: 20050328
  Serious: Yes (Hospitalization, Disabling)
  Sender: FDA-Public Use
  Company Number: FR-2004-033408

PATIENT
  Age: 39 Year
  Sex: Male

DRUGS (7)
  1. REFLUDAN [Suspect]
     Indication: HEPARIN-INDUCED THROMBOCYTOPENIA
     Dosage: SEE IMAGE
     Route: 041
     Dates: start: 20040124
  2. REFLUDAN [Suspect]
     Indication: HEPARIN-INDUCED THROMBOCYTOPENIA
     Dosage: SEE IMAGE
     Route: 041
     Dates: start: 20040124
  3. ORGARAN [Concomitant]
     Indication: HEPARIN-INDUCED THROMBOCYTOPENIA
     Dosage: SEE IMAGE
     Route: 040
     Dates: start: 20040115, end: 20040121
  4. ORGARAN [Concomitant]
     Indication: HEPARIN-INDUCED THROMBOCYTOPENIA
     Dosage: SEE IMAGE
     Route: 040
     Dates: start: 20040115, end: 20040124
  5. ORGARAN [Concomitant]
     Indication: HEPARIN-INDUCED THROMBOCYTOPENIA
     Dosage: SEE IMAGE
     Route: 040
     Dates: start: 20040115
  6. ORGARAN [Concomitant]
     Indication: HEPARIN-INDUCED THROMBOCYTOPENIA
     Dosage: SEE IMAGE
     Route: 040
     Dates: start: 20040115
  7. LOVENOX [Suspect]
     Indication: MYOCARDIAL INFARCTION
     Dates: start: 20040106, end: 20040121

REACTIONS (11)
  - AORTIC EMBOLUS [None]
  - COMA [None]
  - CONFUSIONAL STATE [None]
  - HAEMODIALYSIS [None]
  - INTRACARDIAC THROMBUS [None]
  - LEG AMPUTATION [None]
  - OBSTRUCTION [None]
  - PERIPHERAL ISCHAEMIA [None]
  - QUADRIPLEGIA [None]
  - RENAL FAILURE [None]
  - THROMBOCYTOPENIA [None]
